FAERS Safety Report 4745903-3 (Version None)
Quarter: 2005Q3

REPORT INFORMATION
  Report Type: 
  Country: None (occurrence: None)
  Receive Date: 20050816
  Receipt Date: 20041203
  Transmission Date: 20060218
  Serious: Yes (Life-Threatening, Hospitalization, Other)
  Sender: FDA-Public Use
  Company Number: US-GILEAD-2004-0007826

PATIENT
  Sex: Male
  Weight: 55.842 kg

DRUGS (9)
  1. VIREAD [Suspect]
     Indication: HIV INFECTION
     Route: 048
     Dates: start: 20020501, end: 20041101
  2. KALETRA [Concomitant]
     Indication: HIV INFECTION
     Dates: start: 20020501, end: 20041101
  3. D4T [Concomitant]
     Indication: HIV INFECTION
     Dates: start: 20020501, end: 20041101
  4. SUSTIVA [Concomitant]
     Indication: HIV INFECTION
     Dates: start: 20020501, end: 20041101
  5. FLUNISOLIDE [Concomitant]
     Route: 045
  6. ALBUTEROL [Concomitant]
  7. MULTI-VITAMIN [Concomitant]
  8. TRIRETINOIN/HYDROQUINONE CREAM [Concomitant]
     Route: 061
  9. LOPERAMIDE [Concomitant]

REACTIONS (21)
  - ARTHRALGIA [None]
  - ASTHENIA [None]
  - BLOOD BICARBONATE DECREASED [None]
  - BLOOD CREATINE PHOSPHOKINASE INCREASED [None]
  - CONSTIPATION [None]
  - DRUG TOXICITY [None]
  - ELECTROCARDIOGRAM T WAVE AMPLITUDE DECREASED [None]
  - ELECTROCARDIOGRAM U-WAVE ABNORMALITY [None]
  - FALL [None]
  - FANCONI SYNDROME ACQUIRED [None]
  - HEPATIC STEATOSIS [None]
  - HYPOAESTHESIA [None]
  - HYPOREFLEXIA [None]
  - INAPPROPRIATE SCHEDULE OF DRUG ADMINISTRATION [None]
  - INCORRECT DOSE ADMINISTERED [None]
  - LIMB INJURY [None]
  - MUSCULAR WEAKNESS [None]
  - RENAL FAILURE ACUTE [None]
  - RHABDOMYOLYSIS [None]
  - URINE ANALYSIS ABNORMAL [None]
  - WEIGHT DECREASED [None]
